FAERS Safety Report 21280073 (Version 2)
Quarter: 2022Q4

REPORT INFORMATION
  Report Type: Report from Study
  Country: CO (occurrence: CO)
  Receive Date: 20220901
  Receipt Date: 20221007
  Transmission Date: 20230113
  Serious: Yes (Hospitalization, Other)
  Sender: FDA-Public Use
  Company Number: CO-TAKEDA-CO202016083

PATIENT
  Age: 9 Year
  Sex: Male
  Weight: 32 kg

DRUGS (11)
  1. ICATIBANT [Suspect]
     Active Substance: ICATIBANT ACETATE
     Indication: Hereditary angioedema
     Dosage: 15 MILLIGRAM, Q6HR
     Route: 058
     Dates: start: 20200508
  2. ICATIBANT [Suspect]
     Active Substance: ICATIBANT ACETATE
     Indication: Hereditary angioedema
     Dosage: 15 MILLIGRAM, Q6HR
     Route: 058
     Dates: start: 20200508
  3. ICATIBANT [Suspect]
     Active Substance: ICATIBANT ACETATE
     Dosage: 30 MILLIGRAM, Q6HR
     Route: 058
     Dates: start: 20200508
  4. ICATIBANT [Suspect]
     Active Substance: ICATIBANT ACETATE
     Dosage: 30 MILLIGRAM, Q6HR
     Route: 058
     Dates: start: 20200508
  5. ICATIBANT [Suspect]
     Active Substance: ICATIBANT ACETATE
     Dosage: 1 DOSAGE FORM, Q6HR
     Route: 058
     Dates: start: 20200508
  6. ICATIBANT [Suspect]
     Active Substance: ICATIBANT ACETATE
     Dosage: 1 DOSAGE FORM, Q6HR
     Route: 058
     Dates: start: 20200508
  7. ICATIBANT [Suspect]
     Active Substance: ICATIBANT ACETATE
     Dosage: 15 MILLIGRAM, Q6HR
     Route: 058
     Dates: start: 20200523, end: 20200523
  8. ICATIBANT [Suspect]
     Active Substance: ICATIBANT ACETATE
     Dosage: 15 MILLIGRAM, Q6HR
     Route: 058
     Dates: start: 20200523, end: 20200523
  9. ICATIBANT [Suspect]
     Active Substance: ICATIBANT ACETATE
     Dosage: 15 MILLIGRAM, Q6HR
     Route: 058
     Dates: start: 20200808
  10. ICATIBANT [Suspect]
     Active Substance: ICATIBANT ACETATE
     Dosage: 15 MILLIGRAM, Q6HR
     Route: 058
     Dates: start: 20200808
  11. TAKHZYRO [Suspect]
     Active Substance: LANADELUMAB-FLYO
     Indication: Hereditary angioedema
     Dosage: 1 DOSAGE FORM, 2/MONTH
     Route: 058

REACTIONS (8)
  - Pneumonia [Recovering/Resolving]
  - Hereditary angioedema [Recovered/Resolved]
  - Off label use [Unknown]
  - Product availability issue [Recovering/Resolving]
  - Incorrect dose administered [Unknown]
  - Urticaria [Recovered/Resolved]
  - Pallor [Recovered/Resolved]
  - Crying [Recovered/Resolved]

NARRATIVE: CASE EVENT DATE: 20200721
